FAERS Safety Report 24194075 (Version 1)
Quarter: 2024Q3

REPORT INFORMATION
  Report Type: Spontaneous
  Country: US (occurrence: None)
  Receive Date: 20240809
  Receipt Date: 20240809
  Transmission Date: 20241016
  Serious: No
  Sender: ASTRAZENECA
  Company Number: 2024A161859

PATIENT
  Age: 48 Year
  Sex: Female
  Weight: 65.9 kg

DRUGS (7)
  1. TEZSPIRE [Suspect]
     Active Substance: TEZEPELUMAB-EKKO
     Dates: start: 20240608
  2. DUPIXENT [Suspect]
     Active Substance: DUPILUMAB
     Indication: Asthma prophylaxis
     Dosage: 300.0MG UNKNOWN
     Route: 058
  3. MONTELUKAST SODIUM [Concomitant]
     Active Substance: MONTELUKAST SODIUM
  4. ALGINIC ACID/SODIUM ALGINATE [Concomitant]
  5. DULOXETINE HYDR0CHLORIDE [Concomitant]
  6. TEZEPELUMAB [Concomitant]
     Active Substance: TEZEPELUMAB
  7. FORMOTEROL FUMARATE [Concomitant]
     Active Substance: FORMOTEROL FUMARATE

REACTIONS (5)
  - Fatigue [Unknown]
  - Hypersensitivity [Recovering/Resolving]
  - Conjunctivitis [Recovering/Resolving]
  - Eye swelling [Recovering/Resolving]
  - Ocular hyperaemia [Recovering/Resolving]

NARRATIVE: CASE EVENT DATE: 20240609
